FAERS Safety Report 4513479-1 (Version None)
Quarter: 2004Q4

REPORT INFORMATION
  Report Type: 
  Country: None (occurrence: None)
  Receive Date: 20041130
  Receipt Date: 20041119
  Transmission Date: 20050328
  Serious: Yes (Hospitalization)
  Sender: FDA-Public Use
  Company Number: 200414364FR

PATIENT
  Age: 76 Year
  Sex: Male
  Weight: 76 kg

DRUGS (6)
  1. AMAREL [Suspect]
     Indication: DIABETES MELLITUS NON-INSULIN-DEPENDENT
     Route: 048
  2. TELFAST [Suspect]
     Route: 048
     Dates: start: 20040601, end: 20040628
  3. HAWTHORN [Suspect]
     Route: 048
     Dates: start: 20040601, end: 20040628
  4. NEXEN [Suspect]
     Route: 048
     Dates: start: 20040601, end: 20040628
  5. AVODART                                 /USA/ [Suspect]
     Route: 048
     Dates: start: 20040601, end: 20040628
  6. MOPRAL [Suspect]
     Route: 048
     Dates: start: 20040601, end: 20040628

REACTIONS (8)
  - ALANINE AMINOTRANSFERASE INCREASED [None]
  - ASPARTATE AMINOTRANSFERASE INCREASED [None]
  - BLOOD ALKALINE PHOSPHATASE INCREASED [None]
  - COAGULATION FACTOR V LEVEL DECREASED [None]
  - DYSPEPSIA [None]
  - GAMMA-GLUTAMYLTRANSFERASE INCREASED [None]
  - JAUNDICE CHOLESTATIC [None]
  - PROTHROMBIN LEVEL DECREASED [None]
